FAERS Safety Report 8535634-6 (Version None)
Quarter: 2012Q3

REPORT INFORMATION
  Report Type: 
  Country: None (occurrence: None)
  Receive Date: 20120725
  Receipt Date: 20120719
  Transmission Date: 20120928
  Serious: No
  Sender: FDA-Public Use
  Company Number: US-PFIZER INC-2012175924

PATIENT
  Sex: Male

DRUGS (1)
  1. QUINAPRIL HCL [Suspect]
     Dosage: UNK

REACTIONS (4)
  - POOR QUALITY DRUG ADMINISTERED [None]
  - DRUG DISPENSING ERROR [None]
  - PRODUCT COLOUR ISSUE [None]
  - NAUSEA [None]
